FAERS Safety Report 4277154-3 (Version None)
Quarter: 2004Q1

REPORT INFORMATION
  Report Type: 
  Country: None (occurrence: None)
  Receive Date: 20040120
  Receipt Date: 20040106
  Transmission Date: 20041129
  Serious: Yes (Other)
  Sender: FDA-Public Use
  Company Number: HQWYE188807JAN04

PATIENT
  Sex: Female

DRUGS (2)
  1. EFFEXOR XR [Suspect]
     Indication: HOT FLUSH
     Dosage: 75 MG 1 X PER 1 DAY, ORAL
     Route: 048
  2. IMOVANE (ZOPICLONE) [Suspect]

REACTIONS (5)
  - DRUG INTERACTION [None]
  - LOSS OF CONSCIOUSNESS [None]
  - SLEEP DISORDER [None]
  - SLEEP WALKING [None]
  - VISION BLURRED [None]
